APPROVED DRUG PRODUCT: PHENTERMINE HYDROCHLORIDE
Active Ingredient: PHENTERMINE HYDROCHLORIDE
Strength: 37.5MG
Dosage Form/Route: TABLET;ORAL
Application: A206342 | Product #001 | TE Code: AA
Applicant: PURACAP LABORATORIES LLC DBA BLU PHARMACEUTICALS
Approved: Nov 18, 2016 | RLD: No | RS: No | Type: RX